FAERS Safety Report 6678148-0 (Version None)
Quarter: 2010Q2

REPORT INFORMATION
  Report Type: 
  Country: None (occurrence: None)
  Receive Date: 20100409
  Receipt Date: 20100409
  Transmission Date: 20101027
  Serious: Yes (Other)
  Sender: FDA-Public Use
  Company Number: None

PATIENT
  Age: 45 Year
  Sex: Male
  Weight: 112.9457 kg

DRUGS (27)
  1. ISENTRESS [Suspect]
     Indication: ACQUIRED IMMUNODEFICIENCY SYNDROME
     Dosage: 400MG 1 TAB BID PO, COMPLETED STUDY
     Route: 048
     Dates: start: 20080805, end: 20100319
  2. REYATAZ [Suspect]
     Dosage: 200 MG 2 TAB QD PO
     Route: 048
     Dates: start: 20080805, end: 20100319
  3. INSPRA [Concomitant]
  4. HYDROCORTISONE [Concomitant]
  5. TESTOSTERONE [Concomitant]
  6. PRENISONE [Concomitant]
  7. ZETIA [Concomitant]
  8. LYRICA [Concomitant]
  9. KADIAN [Concomitant]
  10. CYMBALTA [Concomitant]
  11. ZANAFLEX [Concomitant]
  12. IBUPROFEN [Concomitant]
  13. ASPIRIN [Concomitant]
  14. ACYCLOVIR [Concomitant]
  15. VITAMINS [Suspect]
  16. LEVAQUIN [Concomitant]
  17. ORAMOR [Concomitant]
  18. XIFAXAN [Concomitant]
  19. ZOFRAN [Concomitant]
  20. IMMUNE GLOBULIN INTRAVENOUS (HUMAN) [Concomitant]
  21. IMITREX [Concomitant]
  22. TYLENOL-500 [Concomitant]
  23. ROZEREM [Concomitant]
  24. SONATA [Concomitant]
  25. MIMYX [Concomitant]
  26. ADVAIR DISKUS 100/50 [Concomitant]
  27. BENADRYL [Concomitant]

REACTIONS (1)
  - HAEMORRHAGE [None]
